FAERS Safety Report 8818389 (Version 2)
Quarter: 2013Q1

REPORT INFORMATION
  Report Type: Spontaneous
  Country: US (occurrence: US)
  Receive Date: 20121001
  Receipt Date: 20130131
  Transmission Date: 20140127
  Serious: Yes (Life-Threatening, Hospitalization)
  Sender: FDA-Public Use
  Company Number: US-ROCHE-1096687

PATIENT
  Age: 62 Year
  Sex: Female

DRUGS (2)
  1. XOLAIR [Suspect]
     Indication: ASTHMA
     Route: 058
     Dates: start: 20061221, end: 20110512
  2. XOLAIR [Suspect]
     Indication: RHINITIS ALLERGIC

REACTIONS (3)
  - Malaise [Unknown]
  - Myocardial infarction [Recovered/Resolved]
  - Cardiac failure [Recovered/Resolved]
